FAERS Safety Report 4315562-2 (Version None)
Quarter: 2004Q1

REPORT INFORMATION
  Report Type: 
  Country: None (occurrence: None)
  Receive Date: 20040309
  Receipt Date: 20040224
  Transmission Date: 20041129
  Serious: Yes (Other)
  Sender: FDA-Public Use
  Company Number: 204882

PATIENT
  Age: 31 Year
  Sex: Female

DRUGS (1)
  1. XOLAIR [Suspect]
     Indication: ASTHMA
     Dosage: 150 MG, SINGLE
     Dates: start: 20040223, end: 20040223

REACTIONS (3)
  - ASTHMA [None]
  - CONDITION AGGRAVATED [None]
  - INJECTION SITE URTICARIA [None]
